FAERS Safety Report 24800230 (Version 1)
Quarter: 2025Q1

REPORT INFORMATION
  Report Type: Spontaneous
  Country: US (occurrence: None)
  Receive Date: 20250101
  Receipt Date: 20250101
  Transmission Date: 20250409
  Serious: Yes (Hospitalization, Disabling)
  Sender: FDA-CTU
  Company Number: None

PATIENT
  Age: 29 Year
  Sex: Female

DRUGS (1)
  1. NEUTROGENA HYDRO BOOST CITY SHIELD WATER BROAD SPECTRUM SPF 25 [Suspect]
     Active Substance: AVOBENZONE\HOMOSALATE\OCTISALATE\OCTOCRYLENE
     Dates: start: 20240613, end: 20240629

REACTIONS (2)
  - Rash [None]
  - Contusion [None]

NARRATIVE: CASE EVENT DATE: 20240613
